FAERS Safety Report 8444548-1 (Version None)
Quarter: 2012Q2

REPORT INFORMATION
  Report Type: 
  Country: None (occurrence: None)
  Receive Date: 20120611
  Receipt Date: 20120601
  Transmission Date: 20120825
  Serious: Yes (Hospitalization)
  Sender: FDA-Public Use
  Company Number: 2012SP028315

PATIENT
  Age: 66 Year
  Sex: Male
  Weight: 76 kg

DRUGS (13)
  1. URSO 250 [Concomitant]
  2. REBETOL [Suspect]
     Indication: HEPATITIS C
     Dosage: 800;600;400 MG. QD, PO
     Route: 048
     Dates: start: 20120322, end: 20120418
  3. REBETOL [Suspect]
     Indication: HEPATITIS C
     Dosage: 800;600;400 MG. QD, PO
     Route: 048
     Dates: start: 20120419, end: 20120425
  4. REBETOL [Suspect]
     Indication: HEPATITIS C
     Dosage: 800;600;400 MG. QD, PO
     Route: 048
     Dates: start: 20120426, end: 20120510
  5. GASMOTIN [Concomitant]
  6. TALION [Concomitant]
  7. HIRUDOID SOFT [Concomitant]
  8. HOCKHUEKKITO [Concomitant]
  9. ALLOPURINOL [Concomitant]
  10. NORVASC [Concomitant]
  11. ANTEBATE [Concomitant]
  12. PEG-INTRON [Suspect]
     Indication: HEPATITIS C
     Dosage: 1.5 MCG/KG, QW, SC
     Route: 058
     Dates: start: 20120322
  13. LANSOPRAZOLE [Concomitant]

REACTIONS (5)
  - MALAISE [None]
  - PRURITUS [None]
  - GASTRITIS [None]
  - DECREASED APPETITE [None]
  - RASH [None]
